FAERS Safety Report 8930466 (Version 2)
Quarter: 2012Q4

REPORT INFORMATION
  Report Type: 
  Country: US (occurrence: US)
  Receive Date: 20121121
  Receipt Date: 20121212
  Transmission Date: 20130627
  Serious: Yes (Death, Other)
  Sender: FDA-Public Use
  Company Number: US-ASTELLAS-1105359

PATIENT
  Sex: Female
  Weight: 52.21 kg

DRUGS (10)
  1. TARCEVA [Suspect]
     Indication: MALIGNANT RESPIRATORY TRACT NEOPLASM
     Route: 065
  2. TOPROL XL [Concomitant]
     Route: 048
  3. ALTACE [Concomitant]
     Route: 048
  4. RYTHMOL [Concomitant]
     Route: 048
  5. LOVENOX [Concomitant]
     Dosage: 100 mg/ml
     Route: 058
  6. ASPIRIN EC [Concomitant]
     Route: 048
  7. METOCLOPRAMIDE [Concomitant]
     Route: 065
  8. LOVENOX [Concomitant]
     Route: 065
  9. CARBOPLATIN [Concomitant]
     Route: 065
  10. GEMZAR [Concomitant]
     Route: 065

REACTIONS (9)
  - Death [Fatal]
  - Constipation [Unknown]
  - Nausea [Unknown]
  - Deep vein thrombosis [Unknown]
  - Swelling [Unknown]
  - Hypoxia [Recovered/Resolved]
  - Decreased appetite [Unknown]
  - Weight decreased [Unknown]
  - Fatigue [Unknown]
